FAERS Safety Report 4434042-7 (Version None)
Quarter: 2004Q3

REPORT INFORMATION
  Report Type: 
  Country: None (occurrence: None)
  Receive Date: 20040825
  Receipt Date: 20040810
  Transmission Date: 20050211
  Serious: Yes (Death)
  Sender: FDA-Public Use
  Company Number: EWC040840254

PATIENT
  Age: 59 Year
  Sex: Male

DRUGS (4)
  1. XIGRIS [Suspect]
     Indication: SEPSIS
     Dosage: 24 UG/KG/HR
     Dates: start: 20040710
  2. XIGRIS [Suspect]
  3. VASOPRESSORS [Concomitant]
  4. ANTIBIOTICS [Concomitant]

REACTIONS (1)
  - DEATH [None]
